FAERS Safety Report 23409642 (Version 3)
Quarter: 2024Q2

REPORT INFORMATION
  Report Type: Spontaneous
  Country: US (occurrence: US)
  Receive Date: 20240117
  Receipt Date: 20240517
  Transmission Date: 20240716
  Serious: Yes (Other)
  Sender: FDA-Public Use
  Company Number: US-PFIZER INC-202400011633

PATIENT
  Age: 59 Year
  Sex: Female
  Weight: 122.47 kg

DRUGS (3)
  1. XELJANZ XR [Suspect]
     Active Substance: TOFACITINIB CITRATE
     Indication: Rheumatoid arthritis
     Dosage: 11 MG, 1X/DAY
     Route: 048
  2. XELJANZ XR [Suspect]
     Active Substance: TOFACITINIB CITRATE
     Indication: Inflammation
  3. LISINOPRIL [Concomitant]
     Active Substance: LISINOPRIL
     Dosage: 5 MG

REACTIONS (1)
  - Tuberculosis [Unknown]
